FAERS Safety Report 7648239-6 (Version None)
Quarter: 2011Q3

REPORT INFORMATION
  Report Type: 
  Country: None (occurrence: None)
  Receive Date: 20110801
  Receipt Date: 20110726
  Transmission Date: 20111222
  Serious: No
  Sender: FDA-Public Use
  Company Number: US-PFIZER INC-2011170077

PATIENT
  Sex: Male

DRUGS (3)
  1. CIPROFLOXACIN [Suspect]
     Dosage: 500 MG, 2X/DAY
     Dates: start: 20110701, end: 20110701
  2. CLINDAMYCIN HCL [Suspect]
     Dosage: 300 MG, 4X/DAY
     Dates: start: 20110701, end: 20110701
  3. DIPHENHYDRAMINE HCL [Suspect]
     Indication: URTICARIA
     Dosage: UNK
     Dates: start: 20110701

REACTIONS (1)
  - URTICARIA [None]
